FAERS Safety Report 7221595-9 (Version None)
Quarter: 2011Q1

REPORT INFORMATION
  Report Type: 
  Country: None (occurrence: None)
  Receive Date: 20110112
  Receipt Date: 20110106
  Transmission Date: 20110831
  Serious: Yes (Other)
  Sender: FDA-Public Use
  Company Number: CHPA2011GB00670

PATIENT
  Age: 8 Week
  Sex: Male

DRUGS (2)
  1. ACETYLSALICYLIC ACID [Suspect]
     Dosage: MATERNAL DOSE: 2.8 G, UNK
     Route: 064
  2. PARACETAMOL [Suspect]
     Dosage: MATERNAL DOSE: 6.0 G, UNK
     Route: 064

REACTIONS (3)
  - DRUG EXPOSURE DURING PREGNANCY [None]
  - OVERDOSE [None]
  - PYLORIC STENOSIS [None]
